FAERS Safety Report 4395823-1 (Version None)
Quarter: 2004Q3

REPORT INFORMATION
  Report Type: 
  Country: None (occurrence: None)
  Receive Date: 20040707
  Receipt Date: 20040624
  Transmission Date: 20050211
  Serious: Yes (Congenital Anomaly)
  Sender: FDA-Public Use
  Company Number: FR-JNJFOC-20040602860

PATIENT
  Age: 1 Day
  Sex: Male

DRUGS (2)
  1. RISPERDAL [Suspect]
     Dosage: 3 MG, IN 1 DAY, INTRA-UTERNINE
     Route: 064
     Dates: end: 20031001
  2. CHLORPROMAZINE [Concomitant]

REACTIONS (2)
  - CLEFT LIP AND PALATE [None]
  - DRUG EXPOSURE DURING PREGNANCY [None]
